FAERS Safety Report 7764440-5 (Version None)
Quarter: 2011Q3

REPORT INFORMATION
  Report Type: 
  Country: None (occurrence: None)
  Receive Date: 20110921
  Receipt Date: 20110915
  Transmission Date: 20111222
  Serious: Yes (Death, Hospitalization)
  Sender: FDA-Public Use
  Company Number: JP-SANOFI-AVENTIS-2011SA035343

PATIENT
  Age: 71 Year
  Sex: Male
  Weight: 49.9 kg

DRUGS (10)
  1. OMEPRAZOLE [Concomitant]
     Dosage: THERAPY START SICE TWO YEARS PRIOR
     Route: 048
  2. TAXOTERE [Suspect]
     Indication: OESOPHAGEAL CARCINOMA
     Route: 042
     Dates: start: 20110525, end: 20110525
  3. EFUDEX [Suspect]
     Indication: OESOPHAGEAL CARCINOMA
     Dosage: FREQUENCY:5
     Route: 042
     Dates: start: 20110525, end: 20110530
  4. EMEND [Concomitant]
  5. CISPLATIN [Suspect]
     Indication: OESOPHAGEAL CARCINOMA
     Route: 042
     Dates: start: 20110525, end: 20110525
  6. CONIEL [Concomitant]
     Dosage: THERAPY START SINCE TWO YEARS PRIOR
     Route: 048
  7. DEXAMETHASONE SODIUM PHOSPHATE [Concomitant]
  8. MICARDIS [Concomitant]
     Dosage: THERAPY START SICE TWO YEARS PRIOR
     Route: 048
  9. ASPIRIN [Concomitant]
     Dosage: THERAPY START SICE TWO YEARS PRIOR
     Route: 048
  10. ALOXI [Concomitant]

REACTIONS (5)
  - FEBRILE NEUTROPENIA [None]
  - DIARRHOEA [None]
  - SEPSIS [None]
  - BONE MARROW FAILURE [None]
  - ENTERITIS INFECTIOUS [None]
